FAERS Safety Report 7957124-1 (Version None)
Quarter: 2011Q4

REPORT INFORMATION
  Report Type: 
  Country: None (occurrence: None)
  Receive Date: 20111205
  Receipt Date: 20111130
  Transmission Date: 20120403
  Serious: Yes (Hospitalization)
  Sender: FDA-Public Use
  Company Number: JP-ROCHE-1018752

PATIENT
  Sex: Male

DRUGS (2)
  1. ADRENAL HORMONE PREPARATION (UNK INGREDIENTS) [Concomitant]
  2. ACTEMRA [Suspect]
     Indication: RHEUMATOID ARTHRITIS
     Route: 041

REACTIONS (1)
  - INTERSTITIAL LUNG DISEASE [None]
